FAERS Safety Report 22166308 (Version 1)
Quarter: 2023Q2

REPORT INFORMATION
  Report Type: Spontaneous
  Country: US (occurrence: US)
  Receive Date: 20230403
  Receipt Date: 20230403
  Transmission Date: 20230721
  Serious: Yes (Other)
  Sender: FDA-Public Use
  Company Number: US-PFIZER INC-PV202300058361

PATIENT
  Age: 43 Year
  Sex: Female
  Weight: 99.32 kg

DRUGS (2)
  1. DESVENLAFAXINE SUCCINATE [Suspect]
     Active Substance: DESVENLAFAXINE SUCCINATE
     Indication: Generalised anxiety disorder
     Dosage: UNK
  2. DESVENLAFAXINE SUCCINATE [Suspect]
     Active Substance: DESVENLAFAXINE SUCCINATE
     Indication: Depression

REACTIONS (6)
  - Type 2 diabetes mellitus [Unknown]
  - COVID-19 [Unknown]
  - Disease recurrence [Unknown]
  - Tinnitus [Unknown]
  - Nasal adhesions [Unknown]
  - Urticaria [Unknown]
